FAERS Safety Report 25159553 (Version 2)
Quarter: 2025Q4

REPORT INFORMATION
  Report Type: Report from Study
  Country: CA (occurrence: CA)
  Receive Date: 20250404
  Receipt Date: 20251222
  Transmission Date: 20260117
  Serious: Yes (Hospitalization)
  Sender: CSL BEHRING
  Company Number: CA-BEH-2025195344

PATIENT
  Age: 29 Year
  Sex: Female
  Weight: 127 kg

DRUGS (2)
  1. HIZENTRA [Suspect]
     Active Substance: HUMAN IMMUNOGLOBULIN G
     Indication: Dermatomyositis
     Dosage: 20 G, QW (DAY 1 20 GRAMS AND DAY 2 WILL RECEIVED 22 GRAMS TOTAL DOSE 42 GM)
     Route: 065
     Dates: start: 20250204
  2. HIZENTRA [Suspect]
     Active Substance: HUMAN IMMUNOGLOBULIN G
     Dosage: 42 G, QW
     Route: 065
     Dates: start: 20250204

REACTIONS (8)
  - Hospitalisation [Unknown]
  - Asthenia [Unknown]
  - Muscular weakness [Unknown]
  - Flushing [Unknown]
  - Overdose [Unknown]
  - Off label use [Unknown]
  - Therapy change [Unknown]
  - Product use complaint [Unknown]

NARRATIVE: CASE EVENT DATE: 20250204
